FAERS Safety Report 7534010-2 (Version None)
Quarter: 2011Q2

REPORT INFORMATION
  Report Type: 
  Country: None (occurrence: None)
  Receive Date: 20110608
  Receipt Date: 20060905
  Transmission Date: 20111010
  Serious: Yes (Death, Hospitalization)
  Sender: FDA-Public Use
  Company Number: PHNU2006PL03040

PATIENT
  Sex: Male
  Weight: 110 kg

DRUGS (1)
  1. LESCOL XL [Suspect]
     Dosage: 80 MG, QD
     Route: 048
     Dates: start: 20050831, end: 20051002

REACTIONS (3)
  - VOMITING [None]
  - PANCREATITIS [None]
  - ABDOMINAL PAIN LOWER [None]
